FAERS Safety Report 4934901-2 (Version None)
Quarter: 2006Q1

REPORT INFORMATION
  Report Type: 
  Country: None (occurrence: None)
  Receive Date: 20060303
  Receipt Date: 20060303
  Transmission Date: 20060701
  Serious: Yes (Hospitalization, Other)
  Sender: FDA-Public Use
  Company Number: None

PATIENT
  Age: 83 Year
  Sex: Female
  Weight: 91 kg

DRUGS (4)
  1. INTEGRILIN [Suspect]
     Indication: ACUTE MYOCARDIAL INFARCTION
     Dosage: 17MG LOADING IV BOLUS
     Route: 040
     Dates: start: 20060227, end: 20060227
  2. HEPARIN [Concomitant]
  3. ASPIRIN [Concomitant]
  4. PLAVIX [Concomitant]

REACTIONS (5)
  - EPISTAXIS [None]
  - HAEMATOCHEZIA [None]
  - HAEMORRHAGE [None]
  - INFUSION SITE REACTION [None]
  - PLATELET COUNT DECREASED [None]
